FAERS Safety Report 5684375-1 (Version None)
Quarter: 2008Q2

REPORT INFORMATION
  Report Type: 
  Country: None (occurrence: None)
  Receive Date: 20080327
  Receipt Date: 20070515
  Transmission Date: 20081010
  Serious: Yes (Hospitalization)
  Sender: FDA-Public Use
  Company Number: 8024008

PATIENT
  Sex: Female

DRUGS (1)
  1. LORTAB [Suspect]
     Indication: FRACTURE

REACTIONS (1)
  - DRUG DEPENDENCE [None]
